FAERS Safety Report 24820726 (Version 1)
Quarter: 2025Q1

REPORT INFORMATION
  Report Type: Spontaneous
  Country: US (occurrence: US)
  Receive Date: 20250108
  Receipt Date: 20250108
  Transmission Date: 20250409
  Serious: No
  Sender: SANOFI AVENTIS
  Company Number: US-SA-2025SA001432

PATIENT
  Age: 60 Year
  Sex: Male
  Weight: 136.36 kg

DRUGS (22)
  1. DUPIXENT [Suspect]
     Active Substance: DUPILUMAB
     Indication: Asthma
     Dosage: 300 MG, QOW
     Route: 058
     Dates: start: 20240415
  2. WARFARIN SODIUM [Concomitant]
     Active Substance: WARFARIN SODIUM
  3. WARFARIN SODIUM [Concomitant]
     Active Substance: WARFARIN SODIUM
  4. VITAMIN D3 [Concomitant]
     Active Substance: CHOLECALCIFEROL
  5. VENTOLIN HFA [Concomitant]
     Active Substance: ALBUTEROL SULFATE
  6. ALBUTEROL SULFATE [Concomitant]
     Active Substance: ALBUTEROL SULFATE
  7. TUDORZA PRESSAIR [Concomitant]
     Active Substance: ACLIDINIUM BROMIDE
  8. SILDENAFIL CITRATE [Concomitant]
     Active Substance: SILDENAFIL CITRATE
  9. PREDNISONE [Concomitant]
     Active Substance: PREDNISONE
  10. KLOR-CON M10 [Concomitant]
     Active Substance: POTASSIUM CHLORIDE
  11. PANTOPRAZOLE SODIUM [Concomitant]
     Active Substance: PANTOPRAZOLE SODIUM
  12. LISINOPRIL [Concomitant]
     Active Substance: LISINOPRIL
  13. GABAPENTIN [Concomitant]
     Active Substance: GABAPENTIN
  14. FUROSEMIDE [Concomitant]
     Active Substance: FUROSEMIDE
  15. FLUTICASONE PROPIONATE [Concomitant]
     Active Substance: FLUTICASONE PROPIONATE
  16. EZETIMIBE [Concomitant]
     Active Substance: EZETIMIBE
  17. CLARITIN [Concomitant]
     Active Substance: LORATADINE
  18. BUPROPION [Concomitant]
     Active Substance: BUPROPION
  19. ATORVASTATIN CALCIUM [Concomitant]
     Active Substance: ATORVASTATIN CALCIUM
  20. ASPIRIN [Concomitant]
     Active Substance: ASPIRIN
  21. AMMONIUM LACTATE [Concomitant]
     Active Substance: AMMONIUM LACTATE
  22. ADVAIR HFA [Concomitant]
     Active Substance: FLUTICASONE PROPIONATE\SALMETEROL XINAFOATE

REACTIONS (3)
  - Weight increased [Unknown]
  - Stressed eating [Unknown]
  - Decreased activity [Unknown]

NARRATIVE: CASE EVENT DATE: 20240101
